FAERS Safety Report 7363928-9 (Version None)
Quarter: 2011Q1

REPORT INFORMATION
  Report Type: 
  Country: None (occurrence: None)
  Receive Date: 20110321
  Receipt Date: 20110308
  Transmission Date: 20110831
  Serious: Yes (Other)
  Sender: FDA-Public Use
  Company Number: US-ACTELION-A-NJ2011-45670

PATIENT

DRUGS (4)
  1. COUMADIN [Concomitant]
  2. VELETRI [Suspect]
     Indication: PULMONARY ARTERIAL HYPERTENSION
     Dosage: 45 NG/KG, PER MIN
     Route: 041
     Dates: start: 20110204
  3. SILDENAFIL [Concomitant]
  4. TRACLEER [Suspect]
     Indication: PULMONARY ARTERIAL HYPERTENSION
     Dosage: UNK
     Route: 048
     Dates: start: 20030402

REACTIONS (4)
  - BLISTER [None]
  - PEMPHIGOID [None]
  - PHOTOSENSITIVITY REACTION [None]
  - RASH [None]
